FAERS Safety Report 4364877-0 (Version None)
Quarter: 2004Q2

REPORT INFORMATION
  Report Type: 
  Country: None (occurrence: None)
  Receive Date: 20040521
  Receipt Date: 20040504
  Transmission Date: 20050107
  Serious: Yes (Other)
  Sender: FDA-Public Use
  Company Number: US_0403101482

PATIENT
  Age: 10 Year
  Sex: Male

DRUGS (3)
  1. STRATTERA [Suspect]
     Dosage: 40 MG
     Dates: start: 20031106
  2. MIRTAZAPINE [Concomitant]
  3. INSULIN [Concomitant]

REACTIONS (2)
  - SYNCOPE [None]
  - TACHYCARDIA [None]
